FAERS Safety Report 6893097-0 (Version None)
Quarter: 2010Q3

REPORT INFORMATION
  Report Type: 
  Country: None (occurrence: None)
  Receive Date: 20100731
  Receipt Date: 20090424
  Transmission Date: 20110219
  Serious: No
  Sender: FDA-Public Use
  Company Number: US-PFIZER INC-2009205944

PATIENT
  Sex: Female
  Weight: 104.32 kg

DRUGS (3)
  1. GABAPENTIN [Suspect]
     Indication: PAIN
     Dosage: UNK
  2. CALCITRIOL [Concomitant]
     Dosage: UNK
  3. FENTANYL [Concomitant]
     Dosage: UNK

REACTIONS (6)
  - ASTHENIA [None]
  - ATAXIA [None]
  - DRUG DOSE OMISSION [None]
  - FATIGUE [None]
  - FEELING ABNORMAL [None]
  - NUCLEAR MAGNETIC RESONANCE IMAGING ABNORMAL [None]
